FAERS Safety Report 5866137-5 (Version None)
Quarter: 2008Q3

REPORT INFORMATION
  Report Type: 
  Country: None (occurrence: None)
  Receive Date: 20080829
  Receipt Date: 20080819
  Transmission Date: 20090109
  Serious: Yes (Other)
  Sender: FDA-Public Use
  Company Number: DE-PFIZER INC-2008069588

PATIENT
  Sex: Male

DRUGS (2)
  1. LYRICA [Suspect]
     Indication: NEUROPATHY PERIPHERAL
  2. CODEINE SUL TAB [Suspect]
     Route: 048

REACTIONS (6)
  - DYSPNOEA [None]
  - FATIGUE [None]
  - OEDEMA [None]
  - PNEUMONIA [None]
  - SOMNOLENCE [None]
  - WITHDRAWAL SYNDROME [None]
